FAERS Safety Report 20173287 (Version 1)
Quarter: 2021Q4

REPORT INFORMATION
  Report Type: Spontaneous
  Country: US (occurrence: US)
  Receive Date: 20211211
  Receipt Date: 20211211
  Transmission Date: 20220304
  Serious: Yes (Other)
  Sender: FDA-Public Use
  Company Number: US-NOVARTISPH-NVSC2021US280899

PATIENT
  Age: 63 Year
  Sex: Male

DRUGS (4)
  1. RANITIDINE [Suspect]
     Active Substance: RANITIDINE
     Indication: Dyspepsia
     Dosage: 75 TO 150 MG, ONCE DAILY (QD)
     Route: 065
     Dates: end: 201901
  2. RANITIDINE [Suspect]
     Active Substance: RANITIDINE
     Indication: Hyperchlorhydria
  3. RANITIDINE [Suspect]
     Active Substance: RANITIDINE
     Indication: Dyspepsia
     Dosage: 75 TO 150 MG, ONCE DAILY (QD)
     Route: 065
     Dates: end: 201901
  4. RANITIDINE [Suspect]
     Active Substance: RANITIDINE
     Indication: Hyperchlorhydria

REACTIONS (4)
  - Prostate cancer [Unknown]
  - Bone cancer [Unknown]
  - Lymphoma [Unknown]
  - Incorrect dose administered [Unknown]

NARRATIVE: CASE EVENT DATE: 20190801
